FAERS Safety Report 21199665 (Version 1)
Quarter: 2022Q3

REPORT INFORMATION
  Report Type: Spontaneous
  Country: US (occurrence: US)
  Receive Date: 20220811
  Receipt Date: 20220811
  Transmission Date: 20221026
  Serious: Yes (Hospitalization)
  Sender: FDA-Public Use
  Company Number: US-SANOFI-01224140

PATIENT
  Age: 91 Year
  Sex: Male

DRUGS (1)
  1. DULCOLAX NOS [Suspect]
     Active Substance: BISACODYL OR DOCUSATE SODIUM
     Dosage: UNK UNK, QD

REACTIONS (3)
  - Infection [Unknown]
  - Single functional kidney [Unknown]
  - Diarrhoea [Unknown]
